FAERS Safety Report 8606494-X (Version None)
Quarter: 2012Q3

REPORT INFORMATION
  Report Type: 
  Country: None (occurrence: None)
  Receive Date: 20120820
  Receipt Date: 20120815
  Transmission Date: 20120928
  Serious: Yes (Life-Threatening, Other)
  Sender: FDA-Public Use
  Company Number: PHHY2012DE063543

PATIENT
  Age: 85 Year
  Sex: Female

DRUGS (1)
  1. METOCLOPRAMIDE HYDROCHLORIDE [Suspect]
     Indication: NAUSEA
     Dosage: 20 MG, UNK
     Route: 040

REACTIONS (8)
  - PO2 DECREASED [None]
  - CYANOSIS [None]
  - SOMNOLENCE [None]
  - DYSPNOEA [None]
  - TACHYCARDIA [None]
  - ACUTE RESPIRATORY FAILURE [None]
  - METHAEMOGLOBINAEMIA [None]
  - PCO2 DECREASED [None]
